FAERS Safety Report 11715679 (Version 2)
Quarter: 2015Q4

REPORT INFORMATION
  Report Type: Spontaneous
  Country: US (occurrence: US)
  Receive Date: 20151104
  Receipt Date: 20151110
  Transmission Date: 20160304
  Serious: No
  Sender: FDA-Public Use
  Company Number: US-ELI_LILLY_AND_COMPANY-US201104000150

PATIENT
  Age: 77 Year
  Sex: Female

DRUGS (8)
  1. FORTEO [Suspect]
     Active Substance: TERIPARATIDE
     Dosage: 20 UG, QD
     Route: 065
     Dates: start: 20111008
  2. FORTEO [Suspect]
     Active Substance: TERIPARATIDE
     Dosage: 20 UG, QD
     Route: 065
  3. FORTEO [Suspect]
     Active Substance: TERIPARATIDE
     Indication: OSTEOPOROSIS
     Dosage: 20 UG, QD
     Dates: start: 20110315
  4. FORTEO [Suspect]
     Active Substance: TERIPARATIDE
     Dosage: 20 UG, QD
  5. FORTEO [Suspect]
     Active Substance: TERIPARATIDE
     Dosage: 20 UG, QD
     Dates: end: 20110917
  6. FORTEO [Suspect]
     Active Substance: TERIPARATIDE
     Dosage: 20 UG, QD
     Route: 065
  7. FORTEO [Suspect]
     Active Substance: TERIPARATIDE
     Dosage: 20 UG, QD
  8. PERCOCET [Concomitant]
     Active Substance: ACETAMINOPHEN\OXYCODONE HYDROCHLORIDE
     Indication: DYSPEPSIA

REACTIONS (16)
  - Heart rate increased [Not Recovered/Not Resolved]
  - Eructation [Recovered/Resolved]
  - Visual acuity reduced [Unknown]
  - Nausea [Not Recovered/Not Resolved]
  - Emphysema [Unknown]
  - Blood calcium increased [Recovered/Resolved]
  - Anxiety [Not Recovered/Not Resolved]
  - Feeling abnormal [Unknown]
  - Injection site bruising [Unknown]
  - Pain in extremity [Unknown]
  - Malaise [Unknown]
  - Pain [Not Recovered/Not Resolved]
  - Heart rate increased [Unknown]
  - Macular degeneration [Unknown]
  - Chronic obstructive pulmonary disease [Unknown]
  - Arthralgia [Not Recovered/Not Resolved]

NARRATIVE: CASE EVENT DATE: 20110327
